FAERS Safety Report 6207263-0 (Version None)
Quarter: 2009Q2

REPORT INFORMATION
  Report Type: 
  Country: None (occurrence: None)
  Receive Date: 20090528
  Receipt Date: 20090521
  Transmission Date: 20091009
  Serious: Yes (Hospitalization)
  Sender: FDA-Public Use
  Company Number: AU-ABBOTT-09P-008-0574771-00

PATIENT
  Age: 32 Year
  Sex: Female

DRUGS (3)
  1. REDUCTIL 15MG [Suspect]
     Indication: DRUG USE FOR UNKNOWN INDICATION
  2. REDUCTIL 15MG [Suspect]
  3. REDUCTIL 15MG [Suspect]

REACTIONS (3)
  - ARRHYTHMIA [None]
  - FALL [None]
  - SYNCOPE [None]
